FAERS Safety Report 22000149 (Version 1)
Quarter: 2023Q1

REPORT INFORMATION
  Report Type: Spontaneous
  Country: US (occurrence: US)
  Receive Date: 20230216
  Receipt Date: 20230216
  Transmission Date: 20230417
  Serious: Yes (Other)
  Sender: FDA-Public Use
  Company Number: US-PFIZER INC-202300065175

PATIENT
  Sex: Female

DRUGS (3)
  1. LORAZEPAM [Suspect]
     Active Substance: LORAZEPAM
     Indication: Palpitations
     Dosage: UNK, 3X/DAY
  2. LORAZEPAM [Suspect]
     Active Substance: LORAZEPAM
     Indication: Extrasystoles
  3. LOSARTAN [Concomitant]
     Active Substance: LOSARTAN
     Indication: Blood pressure abnormal

REACTIONS (4)
  - Myocardial infarction [Unknown]
  - Cardiac valve disease [Unknown]
  - Therapeutic response unexpected [Unknown]
  - Off label use [Unknown]
